FAERS Safety Report 5318882-8 (Version None)
Quarter: 2007Q1

REPORT INFORMATION
  Report Type: 
  Country: None (occurrence: None)
  Receive Date: 20070201
  Receipt Date: 20061227
  Transmission Date: 20070707
  Serious: No
  Sender: FDA-Public Use
  Company Number: VNL_0357_2006

PATIENT
  Age: 78 Year
  Sex: Male
  Weight: 95.709 kg

DRUGS (9)
  1. APOKYN [Suspect]
     Indication: PARKINSON'S DISEASE
     Dosage: 0.4 ML PRN; SC
     Route: 058
     Dates: start: 20061220
  2. FLOMAX [Concomitant]
  3. AVODART [Concomitant]
  4. TIGAN [Concomitant]
  5. STALEVO 100 [Concomitant]
  6. PERGOLIDE MESYLATE [Concomitant]
  7. ALEVE [Concomitant]
  8. VICODIN [Concomitant]
  9. ANTI-FLAMMATORY AND STEROID MEDICATION [Concomitant]

REACTIONS (5)
  - COUGH [None]
  - NASOPHARYNGITIS [None]
  - OEDEMA PERIPHERAL [None]
  - PRODUCTIVE COUGH [None]
  - WHEEZING [None]
